FAERS Safety Report 13440441 (Version 1)
Quarter: 2017Q2

REPORT INFORMATION
  Report Type: Spontaneous
  Country: US (occurrence: US)
  Receive Date: 20170413
  Receipt Date: 20170413
  Transmission Date: 20170830
  Serious: Yes (Other)
  Sender: FDA-Public Use
  Company Number: US-ACCORD-050044

PATIENT
  Age: 21 Year
  Sex: Male

DRUGS (3)
  1. HYDROCORTISONE. [Concomitant]
     Active Substance: HYDROCORTISONE
     Indication: ARNOLD-CHIARI MALFORMATION
  2. CYTARABINE. [Concomitant]
     Active Substance: CYTARABINE
     Indication: ARNOLD-CHIARI MALFORMATION
  3. METHOTREXATE. [Suspect]
     Active Substance: METHOTREXATE
     Indication: ACUTE LYMPHOCYTIC LEUKAEMIA
     Dosage: ALSO RECEIVED HIGH DOSE (HD) MTX (5 GM/M^2).?PRESENTED EVENTS 10 DAYS AFTER TRIPLE ITMTX AND HDMTX
     Route: 037

REACTIONS (6)
  - Ataxia [Recovered/Resolved]
  - Dysarthria [Recovered/Resolved]
  - Paraesthesia [Recovered/Resolved]
  - Confusional state [Recovered/Resolved]
  - Hypoaesthesia [Recovered/Resolved]
  - Hallucination [Recovered/Resolved]
